FAERS Safety Report 6262155-6 (Version None)
Quarter: 2009Q3

REPORT INFORMATION
  Report Type: 
  Country: None (occurrence: None)
  Receive Date: 20090709
  Receipt Date: 20090629
  Transmission Date: 20100115
  Serious: Yes (Death)
  Sender: FDA-Public Use
  Company Number: CN-PFIZER INC-2009234809

PATIENT
  Age: 12 Year

DRUGS (3)
  1. SULPERAZON [Suspect]
     Indication: INFECTION
     Dosage: UNK
     Route: 042
     Dates: start: 20090101, end: 20090101
  2. VITAMIN K [Concomitant]
     Dates: start: 20090101
  3. CEFTRIAXONE [Concomitant]
     Dates: start: 20090101, end: 20090101

REACTIONS (1)
  - HAEMORRHAGE INTRACRANIAL [None]
